FAERS Safety Report 21451057 (Version 1)
Quarter: 2022Q4

REPORT INFORMATION
  Report Type: Spontaneous
  Country: CH (occurrence: CH)
  Receive Date: 20221013
  Receipt Date: 20221013
  Transmission Date: 20230113
  Serious: Yes (Other)
  Sender: FDA-Public Use
  Company Number: CH-MYLANLABS-2022M1096051

PATIENT
  Sex: Female

DRUGS (1)
  1. AZACITIDINE [Suspect]
     Active Substance: AZACITIDINE
     Indication: Chronic myelomonocytic leukaemia
     Dosage: 56 MILLIGRAM (FOR DAY 1 TO 3 AND DAY 6 TO 7 EVERY 28 DAYS)
     Route: 058
     Dates: start: 20220824

REACTIONS (4)
  - Incorrect dose administered [Unknown]
  - Product reconstitution quality issue [Unknown]
  - Product preparation error [Unknown]
  - Product storage error [Unknown]
